FAERS Safety Report 25779672 (Version 1)
Quarter: 2025Q3

REPORT INFORMATION
  Report Type: Spontaneous
  Country: US (occurrence: US)
  Receive Date: 20250909
  Receipt Date: 20250909
  Transmission Date: 20251020
  Serious: Yes (Hospitalization)
  Sender: B. BRAUN MEDICAL INC.
  Company Number: US-BBM-US-BBM-202503430

PATIENT
  Age: 77 Year
  Sex: Female

DRUGS (1)
  1. MEROPENEM [Suspect]
     Active Substance: MEROPENEM
     Indication: Clostridium difficile colitis

REACTIONS (2)
  - Vitamin C deficiency [Recovered/Resolved]
  - Purpura [Recovered/Resolved]
